FAERS Safety Report 11856145 (Version 2)
Quarter: 2016Q1

REPORT INFORMATION
  Report Type: Spontaneous
  Country: US (occurrence: US)
  Receive Date: 20151221
  Receipt Date: 20160119
  Transmission Date: 20160526
  Serious: No
  Sender: FDA-Public Use
  Company Number: US-BAXALTA-2015BLT003362

PATIENT
  Age: 49 Year
  Sex: Female
  Weight: 78.47 kg

DRUGS (1)
  1. HYQVIA [Suspect]
     Active Substance: HUMAN IMMUNOGLOBULIN G\HYALURONIDASE RECOMBINANT HUMAN
     Indication: COMBINED IMMUNODEFICIENCY
     Dosage: 30 G, EVERY 4 WK
     Route: 058
     Dates: start: 20150421

REACTIONS (1)
  - Infusion site extravasation [Recovered/Resolved]

NARRATIVE: CASE EVENT DATE: 20151217
